FAERS Safety Report 10278158 (Version 2)
Quarter: 2014Q3

REPORT INFORMATION
  Report Type: Spontaneous
  Country: MX (occurrence: MX)
  Receive Date: 20140704
  Receipt Date: 20140704
  Transmission Date: 20150326
  Serious: Yes (Other)
  Sender: FDA-Public Use
  Company Number: PHHY2014MX004958

PATIENT
  Sex: Female

DRUGS (2)
  1. TEGRETOL-XR [Suspect]
     Active Substance: CARBAMAZEPINE
     Dosage: 1200 UKN, (3 DF OF 400 DAILY)
     Route: 048
  2. TEGRETOL-XR [Suspect]
     Active Substance: CARBAMAZEPINE
     Indication: EPILEPSY
     Dosage: 600 UKN, (3 DF OF 200 DAILY)
     Route: 048
     Dates: end: 201308

REACTIONS (2)
  - Maternal exposure during pregnancy [Unknown]
  - High risk pregnancy [Unknown]
